FAERS Safety Report 4930990-X (Version None)
Quarter: 2006Q1

REPORT INFORMATION
  Report Type: 
  Country: None (occurrence: None)
  Receive Date: 20060227
  Receipt Date: 20060213
  Transmission Date: 20060701
  Serious: Yes (Hospitalization)
  Sender: FDA-Public Use
  Company Number: T06-USA-00793-01

PATIENT
  Age: 73 Year
  Sex: Male
  Weight: 97.0698 kg

DRUGS (12)
  1. ESCITALOPRAM (OPEN-LABEL) (ESCITALOPRAM) [Suspect]
     Indication: DEMENTIA
     Dosage: 10 MG QD PO
     Route: 048
     Dates: start: 20060120
  2. ESCITALOPRAM (OPEN-LABEL) (ESCITALOPRAM) [Suspect]
     Indication: DEPRESSION
     Dosage: 10 MG QD PO
     Route: 048
     Dates: start: 20060120
  3. ESCITALOPRAM (OPEN-LABEL) (ESCITALOPRAM) [Suspect]
     Indication: MAJOR DEPRESSION
     Dosage: 10 MG QD PO
     Route: 048
     Dates: start: 20060120
  4. PLACEBO (SINGLE-BLIND) (PLACEBO) [Suspect]
     Indication: DEMENTIA
     Dosage: 1 CAPSULE QD PO
     Route: 048
  5. PLACEBO (SINGLE-BLIND) (PLACEBO) [Suspect]
     Indication: DEPRESSION
     Dosage: 1 CAPSULE QD PO
     Route: 048
  6. PLACEBO (SINGLE-BLIND) (PLACEBO) [Suspect]
     Indication: MAJOR DEPRESSION
     Dosage: 1 CAPSULE QD PO
     Route: 048
  7. ASPIRIN [Suspect]
  8. FUROSEMIDE [Concomitant]
  9. LIPITOR [Concomitant]
  10. POTASSIUM [Concomitant]
  11. DIOVAN [Concomitant]
  12. PREVACID [Concomitant]

REACTIONS (1)
  - DIVERTICULITIS INTESTINAL HAEMORRHAGIC [None]
